FAERS Safety Report 8578377-5 (Version None)
Quarter: 2012Q3

REPORT INFORMATION
  Report Type: 
  Country: None (occurrence: None)
  Receive Date: 20120808
  Receipt Date: 20120730
  Transmission Date: 20120928
  Serious: Yes (Hospitalization, Other)
  Sender: FDA-Public Use
  Company Number: US-BAYER-2012-006541

PATIENT
  Age: 19 Year
  Sex: Female
  Weight: 76.644 kg

DRUGS (9)
  1. YAZ [Suspect]
     Indication: PREMENSTRUAL SYNDROME
  2. NSAID'S [Concomitant]
     Dosage: AS NEEDED
     Dates: start: 20020101
  3. EFFEXOR [Concomitant]
     Indication: DEPRESSION
     Dosage: 150 MG, TWICE DAILY
     Route: 048
     Dates: start: 20090101
  4. MIRALAX [Concomitant]
  5. ONDANSETRON [Concomitant]
     Indication: NAUSEA
     Dosage: 4 MG, UNK
     Route: 048
     Dates: start: 20091222
  6. ZOFRAN [Concomitant]
  7. YAZ [Suspect]
     Indication: CONTRACEPTION
     Dosage: UNK
     Dates: start: 20071107, end: 20100701
  8. KETOROLAC TROMETHAMINE [Concomitant]
     Indication: PAIN
     Dosage: 10 MG
     Route: 048
     Dates: start: 20091222
  9. TORADOL [Concomitant]
     Indication: PAIN
     Dosage: 10 MG, EVERY 6 HOURS AS NEEDED FOR PAIN

REACTIONS (4)
  - GALLBLADDER DISORDER [None]
  - ABDOMINAL PAIN UPPER [None]
  - CHOLECYSTITIS CHRONIC [None]
  - VOMITING [None]
